FAERS Safety Report 9970113 (Version 1)
Quarter: 2014Q1

REPORT INFORMATION
  Report Type: Spontaneous
  Country: US (occurrence: None)
  Receive Date: 20140212
  Receipt Date: 20140212
  Transmission Date: 20141002
  Serious: Yes (Other)
  Sender: FDA-Public Use
  Company Number: 2013SCPR005910

PATIENT
  Sex: Female

DRUGS (1)
  1. BUPROPION HCI XL [Suspect]
     Indication: DEPRESSION

REACTIONS (3)
  - Depression [None]
  - Drug ineffective [None]
  - Product quality issue [None]
